FAERS Safety Report 17649915 (Version 1)
Quarter: 2020Q2

REPORT INFORMATION
  Report Type: Report from Study
  Country: US (occurrence: US)
  Receive Date: 20200409
  Receipt Date: 20200409
  Transmission Date: 20200713
  Serious: No
  Sender: FDA-Public Use
  Company Number: NVSC2020US095183

PATIENT
  Age: 58 Year
  Sex: Male
  Weight: 90.7 kg

DRUGS (2)
  1. COSENTYX [Suspect]
     Active Substance: SECUKINUMAB
     Indication: PSORIASIS
     Dosage: 300 MG, QMO
     Route: 058
     Dates: start: 101803
  2. COSENTYX [Suspect]
     Active Substance: SECUKINUMAB
     Indication: PSORIATIC ARTHROPATHY

REACTIONS (2)
  - Coronavirus infection [Unknown]
  - Cough [Unknown]

NARRATIVE: CASE EVENT DATE: 20200407
